FAERS Safety Report 8825613 (Version 2)
Quarter: 2012Q4

REPORT INFORMATION
  Report Type: 
  Country: US (occurrence: US)
  Receive Date: 20121004
  Receipt Date: 20121106
  Transmission Date: 20130627
  Serious: No
  Sender: FDA-Public Use
  Company Number: US-ASTRAZENECA-2012SE60210

PATIENT
  Age: 78 Year
  Sex: Male

DRUGS (6)
  1. CAPRELSA [Suspect]
     Indication: THYROID CANCER
     Route: 048
     Dates: start: 20120810
  2. CAPRELSA [Suspect]
     Indication: THYROID CANCER
     Route: 048
  3. OXYCODONE HCL [Concomitant]
  4. ASPIRIN [Concomitant]
  5. LEVOTHYROXINE [Concomitant]
  6. OXYCODONE [Concomitant]
     Indication: PAIN

REACTIONS (4)
  - Balance disorder [Unknown]
  - Constipation [Unknown]
  - Ageusia [Unknown]
  - Dermatitis acneiform [Not Recovered/Not Resolved]
